FAERS Safety Report 8613133-0 (Version None)
Quarter: 2012Q3

REPORT INFORMATION
  Report Type: 
  Country: None (occurrence: None)
  Receive Date: 20120822
  Receipt Date: 20120731
  Transmission Date: 20120928
  Serious: Yes (Other)
  Sender: FDA-Public Use
  Company Number: US-009507513-1208USA002213

PATIENT

DRUGS (2)
  1. CLARITIN [Suspect]
     Dosage: UNK
     Dates: start: 20120602, end: 20120714
  2. CLARITIN-D [Suspect]
     Dosage: UNK
     Dates: start: 20120602, end: 20120714

REACTIONS (1)
  - ABORTION SPONTANEOUS [None]
